FAERS Safety Report 6902504-6 (Version None)
Quarter: 2010Q3

REPORT INFORMATION
  Report Type: 
  Country: None (occurrence: None)
  Receive Date: 20100730
  Receipt Date: 20100714
  Transmission Date: 20110219
  Serious: Yes (Death)
  Sender: FDA-Public Use
  Company Number: 2010001370

PATIENT
  Age: 75 Year
  Sex: Male
  Weight: 45.3 kg

DRUGS (5)
  1. ERLOTINIB (ERLOTINIB) (TABLET) (ERLOTINIB) [Suspect]
     Indication: LARGE CELL CARCINOMA OF THE RESPIRATORY TRACT STAGE UNSPECIFIED
     Dosage: (150 MG, QD), ORAL; (50 MG, QD), ORAL
     Route: 048
     Dates: start: 20090820, end: 20091104
  2. ERLOTINIB (ERLOTINIB) (TABLET) (ERLOTINIB) [Suspect]
     Indication: LARGE CELL CARCINOMA OF THE RESPIRATORY TRACT STAGE UNSPECIFIED
     Dosage: (150 MG, QD), ORAL; (50 MG, QD), ORAL
     Route: 048
     Dates: start: 20090904, end: 20091104
  3. PROTECADIN [Concomitant]
  4. MUCOSTA (REBAMIPIDE) [Concomitant]
  5. LEVOFLOXACIN [Concomitant]

REACTIONS (6)
  - DIARRHOEA [None]
  - HEPATIC FUNCTION ABNORMAL [None]
  - INTERSTITIAL LUNG DISEASE [None]
  - PRURITUS [None]
  - RASH [None]
  - SKIN EXFOLIATION [None]
